FAERS Safety Report 13690989 (Version 1)
Quarter: 2017Q2

REPORT INFORMATION
  Report Type: Spontaneous
  Country: FR (occurrence: FR)
  Receive Date: 20170626
  Receipt Date: 20170626
  Transmission Date: 20170830
  Serious: Yes (Congenital Anomaly)
  Sender: FDA-Public Use
  Company Number: FR-SA-2017SA112020

PATIENT
  Sex: Female
  Weight: 2.5 kg

DRUGS (2)
  1. LOVENOX [Suspect]
     Active Substance: ENOXAPARIN SODIUM
     Dosage: AT CURATIVE DOSE
     Route: 064
     Dates: start: 20151015
  2. PREVISCAN [Suspect]
     Active Substance: FLUINDIONE
     Dosage: DOSAGE  FORM: DIVISIBLE TABLET
     Route: 064
     Dates: start: 20150903, end: 20151015

REACTIONS (3)
  - Foetal exposure during pregnancy [Unknown]
  - Foetal growth restriction [Unknown]
  - Skin atrophy [Not Recovered/Not Resolved]
